FAERS Safety Report 14567608 (Version 7)
Quarter: 2020Q1

REPORT INFORMATION
  Report Type: Report from Study
  Country: JP (occurrence: JP)
  Receive Date: 20180223
  Receipt Date: 20200214
  Transmission Date: 20200409
  Serious: Yes (Hospitalization)
  Sender: FDA-Public Use
  Company Number: JP-ACTELION-A-CH2018-167963

PATIENT
  Age: 22 Year
  Sex: Female
  Weight: 60 kg

DRUGS (48)
  1. EPOPROSTENOL ACT [Suspect]
     Active Substance: EPOPROSTENOL
     Dosage: UNK
     Route: 042
     Dates: start: 20170805, end: 20170808
  2. UPTRAVI [Suspect]
     Active Substance: SELEXIPAG
     Indication: PULMONARY ARTERIAL HYPERTENSION
     Dosage: 0.4 MG, BID
     Route: 048
     Dates: start: 20170215, end: 20170302
  3. UPTRAVI [Suspect]
     Active Substance: SELEXIPAG
     Dosage: 0.6 MG, BID
     Route: 048
     Dates: start: 20170303, end: 20170315
  4. UPTRAVI [Suspect]
     Active Substance: SELEXIPAG
     Dosage: 1.2 MG, BID
     Route: 048
     Dates: start: 20170715, end: 20170721
  5. UPTRAVI [Suspect]
     Active Substance: SELEXIPAG
     Dosage: 1.6 MG, BID
     Route: 048
     Dates: start: 20170823
  6. PREDNISOLONE. [Suspect]
     Active Substance: PREDNISOLONE
     Indication: MIXED CONNECTIVE TISSUE DISEASE
     Dosage: 30 MG, QD
     Route: 048
     Dates: start: 20170208, end: 20170301
  7. ADEMPAS [Concomitant]
     Active Substance: RIOCIGUAT
     Indication: PULMONARY ARTERIAL HYPERTENSION
     Dosage: 7.5 MG, QD
     Dates: start: 20161222
  8. EPOPROSTENOL ACT [Suspect]
     Active Substance: EPOPROSTENOL
     Dosage: UNK
     Route: 042
     Dates: start: 20180213
  9. EPOPROSTENOL ACT [Suspect]
     Active Substance: EPOPROSTENOL
     Dosage: UNK
     Route: 042
     Dates: start: 20170728, end: 20170731
  10. UPTRAVI [Suspect]
     Active Substance: SELEXIPAG
     Dosage: 1 MG, BID
     Route: 048
     Dates: start: 20170608, end: 20170714
  11. MAGNESIUM OXIDE. [Concomitant]
     Active Substance: MAGNESIUM OXIDE
  12. PREDNISOLONE. [Suspect]
     Active Substance: PREDNISOLONE
     Dosage: 27.5 MG, QD
     Route: 048
     Dates: start: 20170302, end: 20170329
  13. SAMSCA [Concomitant]
     Active Substance: TOLVAPTAN
     Dosage: 0.25 DF, QD
     Dates: start: 20180112
  14. EPOPROSTENOL ACT [Suspect]
     Active Substance: EPOPROSTENOL
     Dosage: UNK
     Route: 042
     Dates: start: 20170813
  15. EPOPROSTENOL ACT [Suspect]
     Active Substance: EPOPROSTENOL
     Dosage: UNK
     Route: 042
     Dates: start: 20170725, end: 20170725
  16. UPTRAVI [Suspect]
     Active Substance: SELEXIPAG
     Dosage: 1.4 MG, BID
     Route: 048
     Dates: start: 20170722, end: 20170822
  17. PREDNISOLONE. [Suspect]
     Active Substance: PREDNISOLONE
     Dosage: 12.5 MG, QD
     Route: 048
     Dates: start: 20170622
  18. BAKTAR [Concomitant]
     Active Substance: SULFAMETHOXAZOLE\TRIMETHOPRIM
     Dosage: 1 DF, QD
     Dates: start: 20161224, end: 20180123
  19. EPOPROSTENOL ACT [Suspect]
     Active Substance: EPOPROSTENOL
     Dosage: UNK
     Route: 042
     Dates: start: 20170809, end: 20170812
  20. UPTRAVI [Suspect]
     Active Substance: SELEXIPAG
     Dosage: 0.6 MG, BID
     Route: 048
     Dates: start: 20170331, end: 20170412
  21. UPTRAVI [Suspect]
     Active Substance: SELEXIPAG
     Dosage: 0.8 MG, BID
     Route: 048
     Dates: start: 20170413, end: 20170510
  22. UPTRAVI [Suspect]
     Active Substance: SELEXIPAG
     Dosage: 1.2 MG, BID
     Route: 048
     Dates: start: 20170511, end: 20170607
  23. FUROSEMIDE. [Concomitant]
     Active Substance: FUROSEMIDE
     Dosage: 40 MG, QD
     Dates: start: 20170809
  24. EPOPROSTENOL ACT [Suspect]
     Active Substance: EPOPROSTENOL
     Dosage: UNK
     Route: 042
     Dates: start: 20170721, end: 20170721
  25. EPOPROSTENOL ACT [Suspect]
     Active Substance: EPOPROSTENOL
     Dosage: UNK
     Route: 042
     Dates: start: 20170722, end: 20170722
  26. EPOPROSTENOL ACT [Suspect]
     Active Substance: EPOPROSTENOL
     Dosage: UNK
     Route: 042
     Dates: start: 20170724, end: 20170724
  27. EPOPROSTENOL ACT [Suspect]
     Active Substance: EPOPROSTENOL
     Dosage: UNK
     Route: 042
     Dates: start: 20170726, end: 20170726
  28. PREDNISOLONE. [Suspect]
     Active Substance: PREDNISOLONE
     Dosage: 25 MG, QD
     Route: 048
     Dates: start: 20170330, end: 20170426
  29. OPSUMIT [Suspect]
     Active Substance: MACITENTAN
     Indication: PULMONARY ARTERIAL HYPERTENSION
     Dosage: 10 MG, QD
     Route: 048
     Dates: start: 20161221
  30. EPOPROSTENOL ACT [Suspect]
     Active Substance: EPOPROSTENOL
     Dosage: UNK
     Route: 042
     Dates: start: 20170723, end: 20170723
  31. EPOPROSTENOL ACT [Suspect]
     Active Substance: EPOPROSTENOL
     Dosage: UNK
     Route: 042
     Dates: start: 20170727, end: 20170727
  32. PREDNISOLONE. [Suspect]
     Active Substance: PREDNISOLONE
     Dosage: 15 MG, QD
     Route: 048
     Dates: start: 20170525, end: 20170621
  33. PREDNISOLONE. [Suspect]
     Active Substance: PREDNISOLONE
     Dosage: 5 MG, QD
     Route: 048
     Dates: start: 20180123
  34. ALDACTONE A [Concomitant]
     Active Substance: SPIRONOLACTONE
     Dosage: 25 MG, QD
     Dates: start: 20170128
  35. FERROMIA [Concomitant]
     Active Substance: SODIUM FERROUS CITRATE
  36. FUROSEMIDE. [Concomitant]
     Active Substance: FUROSEMIDE
     Dosage: 20 MG, QD
     Dates: start: 20170128, end: 20170808
  37. FUROSEMIDE. [Concomitant]
     Active Substance: FUROSEMIDE
     Dosage: 20 MG, QD
     Dates: start: 20170809
  38. ENDOXAN [Concomitant]
     Active Substance: CYCLOPHOSPHAMIDE
     Indication: MIXED CONNECTIVE TISSUE DISEASE
     Dosage: UNK UNK, QD
     Dates: start: 20170123, end: 20170525
  39. BONALON [Concomitant]
     Active Substance: ALENDRONATE SODIUM
  40. EPOPROSTENOL ACT [Suspect]
     Active Substance: EPOPROSTENOL
     Indication: PULMONARY ARTERIAL HYPERTENSION
     Dosage: UNK
     Route: 042
     Dates: start: 20170719, end: 20170719
  41. EPOPROSTENOL ACT [Suspect]
     Active Substance: EPOPROSTENOL
     Dosage: UNK
     Route: 042
     Dates: start: 20170720, end: 20170720
  42. EPOPROSTENOL ACT [Suspect]
     Active Substance: EPOPROSTENOL
     Dosage: UNK
     Route: 042
     Dates: start: 20170801, end: 20170804
  43. EPOPROSTENOL ACT [Suspect]
     Active Substance: EPOPROSTENOL
     Dosage: UNK
     Route: 042
  44. UPTRAVI [Suspect]
     Active Substance: SELEXIPAG
     Dosage: 0.8 MG, BID
     Route: 048
     Dates: start: 20170316, end: 20170330
  45. AZANIN [Suspect]
     Active Substance: AZATHIOPRINE
     Indication: MIXED CONNECTIVE TISSUE DISEASE
     Dosage: 50 MG, QD
     Route: 048
     Dates: start: 20170622
  46. PREDNISOLONE. [Suspect]
     Active Substance: PREDNISOLONE
     Dosage: 20 MG, QD
     Route: 048
     Dates: start: 20170427, end: 20170510
  47. PREDNISOLONE. [Suspect]
     Active Substance: PREDNISOLONE
     Dosage: 17.5 MG, QD
     Route: 048
     Dates: start: 20170511, end: 20170524
  48. PARIET [Concomitant]
     Active Substance: RABEPRAZOLE SODIUM
     Dosage: 10 MG, QD
     Dates: start: 20161224

REACTIONS (10)
  - Pyrexia [Recovered/Resolved]
  - Pulmonary arterial hypertension [Recovered/Resolved]
  - Decreased appetite [Recovered/Resolved]
  - Erythema [Recovering/Resolving]
  - Platelet count decreased [Not Recovered/Not Resolved]
  - Headache [Recovering/Resolving]
  - Cold sweat [Recovered/Resolved]
  - Constipation [Recovering/Resolving]
  - Pneumonia [Recovered/Resolved]
  - Nausea [Recovered/Resolved]

NARRATIVE: CASE EVENT DATE: 20170607
